FAERS Safety Report 11510597 (Version 1)
Quarter: 2015Q3

REPORT INFORMATION
  Report Type: Spontaneous
  Country: US (occurrence: US)
  Receive Date: 20150915
  Receipt Date: 20150915
  Transmission Date: 20151125
  Serious: No
  Sender: FDA-Public Use
  Company Number: US-JNJFOC-20150706927

PATIENT
  Age: 54 Year
  Sex: Male
  Weight: 68.04 kg

DRUGS (1)
  1. TYLENOL EXTRA STRENGTH [Suspect]
     Active Substance: ACETAMINOPHEN
     Indication: SINUSITIS
     Dosage: SICNE 5 DAYS
     Route: 048
     Dates: end: 20150708

REACTIONS (4)
  - Product commingling [Unknown]
  - Expired product administered [Unknown]
  - Product use issue [Unknown]
  - Drug dispensing error [Unknown]

NARRATIVE: CASE EVENT DATE: 20150708
